FAERS Safety Report 4556877-2 (Version None)
Quarter: 2005Q1

REPORT INFORMATION
  Report Type: 
  Country: None (occurrence: None)
  Receive Date: 20050118
  Receipt Date: 20050105
  Transmission Date: 20050727
  Serious: Yes (Other)
  Sender: FDA-Public Use
  Company Number: 2004105910

PATIENT
  Sex: Male

DRUGS (1)
  1. PHENYTOIN SODIUM [Suspect]
     Indication: ILL-DEFINED DISORDER
     Dosage: 325 MG (325 MG, 1 IN 1 D), ORAL
     Route: 048

REACTIONS (2)
  - CONVULSION [None]
  - UNEVALUABLE EVENT [None]
